FAERS Safety Report 7930785-9 (Version None)
Quarter: 2011Q4

REPORT INFORMATION
  Report Type: 
  Country: None (occurrence: None)
  Receive Date: 20111121
  Receipt Date: 20111111
  Transmission Date: 20120403
  Serious: Yes (Hospitalization)
  Sender: FDA-Public Use
  Company Number: JP-GLAXOSMITHKLINE-B0700794A

PATIENT
  Sex: Male

DRUGS (3)
  1. DUTASTERIDE [Suspect]
     Indication: PRODUCT USED FOR UNKNOWN INDICATION
     Dosage: .5MG PER DAY
     Route: 048
     Dates: start: 20101112
  2. URIEF [Concomitant]
     Dosage: 8MG PER DAY
     Route: 048
  3. FAMOTIDINE [Concomitant]
     Dosage: 40MG PER DAY
     Route: 048

REACTIONS (3)
  - PROSTATIC HAEMORRHAGE [None]
  - BLADDER TAMPONADE [None]
  - HAEMATURIA [None]
